FAERS Safety Report 11876625 (Version 1)
Quarter: 2015Q4

REPORT INFORMATION
  Report Type: Spontaneous
  Country: GR (occurrence: GR)
  Receive Date: 20151229
  Receipt Date: 20151229
  Transmission Date: 20160305
  Serious: Yes (Other)
  Sender: FDA-Public Use
  Company Number: GR-PFIZER INC-2015454945

PATIENT
  Sex: Male

DRUGS (2)
  1. TAVOR [Suspect]
     Active Substance: LORAZEPAM
     Dosage: 2.5 MG, UNK
  2. XALATAN [Suspect]
     Active Substance: LATANOPROST
     Dosage: UNK

REACTIONS (5)
  - Headache [Unknown]
  - Pruritus [Recovered/Resolved]
  - Vision blurred [Recovered/Resolved]
  - Peripheral coldness [Unknown]
  - Asthenia [Unknown]

NARRATIVE: CASE EVENT DATE: 20151216
